FAERS Safety Report 7871573-1 (Version None)
Quarter: 2011Q4

REPORT INFORMATION
  Report Type: 
  Country: None (occurrence: None)
  Receive Date: 20111029
  Receipt Date: 20110304
  Transmission Date: 20120403
  Serious: No
  Sender: FDA-Public Use
  Company Number: US-AMGEN-USASP2011012369

PATIENT
  Sex: Female

DRUGS (3)
  1. ENBREL [Suspect]
     Indication: RHEUMATOID ARTHRITIS
     Dates: start: 20070101
  2. METHOTREXATE [Concomitant]
     Dosage: 1 MG, QWK
     Dates: start: 19990101
  3. HUMIRA [Concomitant]
     Dosage: UNK

REACTIONS (4)
  - GOUT [None]
  - IMPAIRED HEALING [None]
  - INJECTION SITE PAIN [None]
  - DRUG INEFFECTIVE [None]
